FAERS Safety Report 8880349 (Version 7)
Quarter: 2014Q2

REPORT INFORMATION
  Report Type: Spontaneous
  Country: JP (occurrence: JP)
  Receive Date: 20121101
  Receipt Date: 20140508
  Transmission Date: 20141212
  Serious: Yes (Life-Threatening, Hospitalization, Other)
  Sender: FDA-Public Use
  Company Number: JP-PFIZER INC-2012272446

PATIENT
  Age: 66 Year
  Sex: Female

DRUGS (20)
  1. AMLODIN [Suspect]
     Dosage: 100 DF, SINGLE (5 MG)
     Route: 048
     Dates: start: 20121013, end: 20121013
  2. PREDOPA [Concomitant]
     Dosage: 26 UG/KG/MIN
     Dates: end: 20121016
  3. NORADRENALINE [Concomitant]
     Dosage: 0.26 UG/KG/MIN
     Dates: end: 20121016
  4. PITRESSIN [Concomitant]
     Dosage: 40 UNITS/DAY
     Dates: end: 20121016
  5. BOSMIN [Concomitant]
     Dosage: 0.088 UG/KG/MIN
     Dates: end: 20121015
  6. PICILLIBACTA [Concomitant]
     Dosage: UNK
  7. CLIDAMACIN [Concomitant]
  8. OMEPRAL [Concomitant]
     Dosage: UNK
  9. GLUCAGON G [Concomitant]
     Dosage: UNK
  10. ATROPINE SULFATE HYDRATE [Concomitant]
     Dosage: UNK
  11. CALCIUM CHLORIDE [Concomitant]
     Dosage: UNK
  12. SODIUM PHOSPHATE [Concomitant]
     Dosage: UNK
  13. DORMICUM [Concomitant]
     Dosage: UNK
  14. THYRADIN S [Concomitant]
     Dosage: UNK
  15. MAGMITT [Concomitant]
     Dosage: UNK
  16. FAMOTIDINE D [Concomitant]
     Dosage: UNK
  17. ZOLPIDEM TARTRATE [Concomitant]
     Dosage: UNK
  18. LYRICA [Concomitant]
     Dosage: UNK
  19. METHYCOBAL [Concomitant]
     Dosage: UNK
  20. ADETPHOS [Concomitant]
     Dosage: UNK

REACTIONS (5)
  - Intentional overdose [Unknown]
  - Shock [Recovering/Resolving]
  - Toxicity to various agents [Recovering/Resolving]
  - Depressed level of consciousness [Recovering/Resolving]
  - Blood pressure decreased [Recovering/Resolving]
